FAERS Safety Report 12093030 (Version 2)
Quarter: 2016Q1

REPORT INFORMATION
  Report Type: Spontaneous
  Country: US (occurrence: US)
  Receive Date: 20160219
  Receipt Date: 20160225
  Transmission Date: 20160526
  Serious: No
  Sender: FDA-Public Use
  Company Number: US-PFIZER INC-2016051609

PATIENT
  Age: 56 Year
  Sex: Male
  Weight: 73 kg

DRUGS (1)
  1. VIAGRA [Suspect]
     Active Substance: SILDENAFIL CITRATE
     Dosage: 50 MG, SINGLE

REACTIONS (4)
  - Cyanopsia [Recovered/Resolved]
  - Chromatopsia [Recovered/Resolved]
  - Nasal congestion [Recovered/Resolved]
  - Vision blurred [Recovered/Resolved]
